FAERS Safety Report 23130848 (Version 1)
Quarter: 2023Q4

REPORT INFORMATION
  Report Type: Spontaneous
  Country: US (occurrence: None)
  Receive Date: 20231031
  Receipt Date: 20231031
  Transmission Date: 20240110
  Serious: No
  Sender: FDA-Public Use
  Company Number: None

PATIENT

DRUGS (2)
  1. DOXYCYCLINE [Suspect]
     Active Substance: DOXYCYCLINE
  2. ACITRETIN [Suspect]
     Active Substance: ACITRETIN

REACTIONS (2)
  - Contraindicated product prescribed [None]
  - Product dispensing error [None]
